FAERS Safety Report 25513398 (Version 1)
Quarter: 2025Q3

REPORT INFORMATION
  Report Type: Spontaneous
  Country: US (occurrence: US)
  Receive Date: 20250703
  Receipt Date: 20250703
  Transmission Date: 20251021
  Serious: No
  Sender: SANOFI AVENTIS
  Company Number: US-SA-2025SA185402

PATIENT
  Age: 24 Year
  Sex: Female

DRUGS (2)
  1. DUPIXENT [Suspect]
     Active Substance: DUPILUMAB
     Indication: Psoriasis
     Dosage: 300 MG, QOW
     Route: 058
     Dates: start: 202112
  2. GABAPENTIN [Concomitant]
     Active Substance: GABAPENTIN

REACTIONS (2)
  - Product use in unapproved indication [Unknown]
  - Drug ineffective [Unknown]

NARRATIVE: CASE EVENT DATE: 20211201
